FAERS Safety Report 18255470 (Version 1)
Quarter: 2020Q3

REPORT INFORMATION
  Report Type: Spontaneous
  Country: ZA (occurrence: ZA)
  Receive Date: 20200911
  Receipt Date: 20200911
  Transmission Date: 20201103
  Serious: Yes (Death, Other)
  Sender: FDA-Public Use
  Company Number: ZA-LUPIN PHARMACEUTICALS INC.-2020-05688

PATIENT
  Sex: Male

DRUGS (6)
  1. AMLOC (AMLODIPINE BESYLATE) [Suspect]
     Active Substance: AMLODIPINE BESYLATE
     Indication: HYPERTENSION
     Dosage: 10 MILLIGRAM, UNK
     Route: 048
  2. AUSTELL SIMVASTATIN [Suspect]
     Active Substance: SIMVASTATIN
     Indication: BLOOD CHOLESTEROL ABNORMAL
     Dosage: 20 MILLIGRAM, UNK
     Route: 048
  3. PHARMAPRESS [ENALAPRIL MALEATE] [Suspect]
     Active Substance: ENALAPRIL MALEATE
     Indication: HYPERTENSION
     Dosage: 20/12.5 MILLIGRAM, UNK
     Route: 048
  4. CARLOC [Suspect]
     Active Substance: CARVEDILOL
     Indication: CARDIAC DISORDER
     Dosage: 25 MILLIGRAM, UNK
     Route: 048
  5. ECOTRIN [Suspect]
     Active Substance: ASPIRIN
     Indication: CYTOMEGALOVIRUS INFECTION
     Dosage: 81 MILLIGRAM, UNK
     Route: 048
  6. OPTISULIN [INSULIN GLARGINE] [Suspect]
     Active Substance: INSULIN GLARGINE
     Indication: DIABETES MELLITUS
     Dosage: 100 INTERNATIONAL UNIT, UNK
     Route: 048

REACTIONS (2)
  - Embolism [Fatal]
  - Cardiac failure [Fatal]
